FAERS Safety Report 6072252-6 (Version None)
Quarter: 2009Q1

REPORT INFORMATION
  Report Type: 
  Country: None (occurrence: None)
  Receive Date: 20090210
  Receipt Date: 20090204
  Transmission Date: 20090719
  Serious: Yes (Hospitalization)
  Sender: FDA-Public Use
  Company Number: US-ASTRAZENECA-2009UW03345

PATIENT
  Sex: Male

DRUGS (2)
  1. ATACAND HCT [Suspect]
     Route: 048
  2. CRESTOR [Suspect]
     Route: 048

REACTIONS (3)
  - BALANCE DISORDER [None]
  - BRONCHITIS [None]
  - DIZZINESS [None]
